FAERS Safety Report 5680901-7 (Version None)
Quarter: 2008Q1

REPORT INFORMATION
  Report Type: 
  Country: None (occurrence: None)
  Receive Date: 20080325
  Receipt Date: 20080318
  Transmission Date: 20080703
  Serious: Yes (Death, Hospitalization)
  Sender: FDA-Public Use
  Company Number: 163-C5013-08010194

PATIENT
  Age: 68 Year
  Sex: Male
  Weight: 106.3 kg

DRUGS (11)
  1. CC-5013 (LENALIDOMIDE) (CAPSULES) [Suspect]
     Indication: LYMPHOMA
     Dosage: 25 MG, DAILY, ORAL, 15 MG, ORAL
     Route: 048
     Dates: start: 20071030, end: 20071210
  2. COZAAR [Concomitant]
  3. TOPROL-XL [Concomitant]
  4. ASPIRIN [Concomitant]
  5. XANAX [Concomitant]
  6. COMPAZINE (PROCHLORPERAZINE EDISYLATE) [Concomitant]
  7. VICODIN [Concomitant]
  8. COLACE (DOCUSATE SODIUM) [Concomitant]
  9. CENTRUM (CENTRUM) [Concomitant]
  10. MORPHINE SULFATE [Concomitant]
  11. AMBIEN [Concomitant]

REACTIONS (23)
  - ALANINE AMINOTRANSFERASE INCREASED [None]
  - ASPARTATE AMINOTRANSFERASE INCREASED [None]
  - ASTHENIA [None]
  - BLOOD POTASSIUM DECREASED [None]
  - BLOOD PRESSURE DECREASED [None]
  - CHEST WALL MASS [None]
  - DECREASED APPETITE [None]
  - DEHYDRATION [None]
  - DIARRHOEA [None]
  - DISEASE PROGRESSION [None]
  - HAEMATOCRIT DECREASED [None]
  - HAEMOGLOBIN DECREASED [None]
  - HYPERCALCAEMIA [None]
  - LYMPHOMA [None]
  - NEUTROPHIL COUNT DECREASED [None]
  - OEDEMA PERIPHERAL [None]
  - ORAL INTAKE REDUCED [None]
  - PLATELET COUNT DECREASED [None]
  - RED BLOOD CELL COUNT DECREASED [None]
  - RENAL FAILURE ACUTE [None]
  - SOMNOLENCE [None]
  - WHITE BLOOD CELL COUNT DECREASED [None]
  - WOUND NECROSIS [None]
